FAERS Safety Report 8612949-4 (Version None)
Quarter: 2012Q3

REPORT INFORMATION
  Report Type: 
  Country: None (occurrence: None)
  Receive Date: 20120822
  Receipt Date: 20120702
  Transmission Date: 20120928
  Serious: No
  Sender: FDA-Public Use
  Company Number: US-ALLERGAN-1209159US

PATIENT
  Age: 73 Year
  Sex: Female

DRUGS (1)
  1. SANCTURA XR [Suspect]
     Indication: URINARY INCONTINENCE
     Dosage: 1 TABLET, QD
     Route: 048
     Dates: start: 20120601

REACTIONS (2)
  - DRY EYE [None]
  - OCULAR HYPERAEMIA [None]
